FAERS Safety Report 9682588 (Version 2)
Quarter: 2014Q1

REPORT INFORMATION
  Report Type: Spontaneous
  Country: US (occurrence: US)
  Receive Date: 20131112
  Receipt Date: 20140311
  Transmission Date: 20141002
  Serious: Yes (Other)
  Sender: FDA-Public Use
  Company Number: US-UCBSA-102286

PATIENT
  Age: 83 Year
  Sex: Female

DRUGS (5)
  1. NEUPRO [Suspect]
     Indication: PARKINSON^S DISEASE
     Route: 062
     Dates: start: 20130905, end: 20130930
  2. SINEMET [Concomitant]
     Indication: PARKINSON^S DISEASE
     Dosage: 25/100; 8 TABLETS DAILY
     Route: 048
  3. COMTAN [Concomitant]
     Indication: PARKINSON^S DISEASE
     Dosage: DOSE: 200
     Route: 048
  4. OMEPRAZOLE [Concomitant]
     Dosage: DOSE: 40
     Route: 048
  5. CELEXA [Concomitant]
     Dosage: DOSE: 20
     Route: 048

REACTIONS (1)
  - Suicidal ideation [Recovered/Resolved]
